FAERS Safety Report 6796317-6 (Version None)
Quarter: 2010Q2

REPORT INFORMATION
  Report Type: 
  Country: None (occurrence: None)
  Receive Date: 20100622
  Receipt Date: 20100607
  Transmission Date: 20101027
  Serious: Yes (Hospitalization, Disabling)
  Sender: FDA-Public Use
  Company Number: 2010AL003326

PATIENT
  Age: 69 Year
  Sex: Male

DRUGS (15)
  1. RISPERIDONE [Suspect]
     Indication: SCHIZOPHRENIA
     Dates: end: 20061101
  2. MIRTAZAPINE [Suspect]
     Indication: SCHIZOPHRENIA
     Dates: end: 20061101
  3. CLONAZEPAM [Suspect]
  4. FLUPHENAZINE [Concomitant]
  5. LEVOMEPROMAZINE [Concomitant]
  6. AMITRIPTYLINE [Concomitant]
  7. HALOPERIDOL [Concomitant]
  8. PIPAMPERONE [Concomitant]
  9. TRIHEXYPHENIDYL HCL [Concomitant]
  10. ANXIOLYTICS [Concomitant]
  11. MEPROBAMATE [Concomitant]
  12. ACEPROMETHAZINE [Concomitant]
  13. OXAZEPAM [Concomitant]
  14. VALPROMIDE [Concomitant]
  15. OLANZAPINE [Concomitant]

REACTIONS (12)
  - ABNORMAL BEHAVIOUR [None]
  - ALANINE AMINOTRANSFERASE INCREASED [None]
  - APATHY [None]
  - ASPARTATE AMINOTRANSFERASE INCREASED [None]
  - CELL DEATH [None]
  - DELIRIUM [None]
  - DIET REFUSAL [None]
  - HYPOTHERMIA [None]
  - PNEUMONIA ASPIRATION [None]
  - PSYCHOMOTOR HYPERACTIVITY [None]
  - SCHIZOPHRENIA [None]
  - SLEEP DISORDER [None]
